FAERS Safety Report 12791399 (Version 4)
Quarter: 2018Q3

REPORT INFORMATION
  Report Type: Report from Study
  Country: CA (occurrence: CA)
  Receive Date: 20160929
  Receipt Date: 20180919
  Transmission Date: 20181010
  Serious: Yes (Hospitalization)
  Sender: FDA-Public Use
  Company Number: PHHY2016CA131488

PATIENT
  Sex: Male

DRUGS (2)
  1. GLIVEC [Suspect]
     Active Substance: IMATINIB MESYLATE
     Indication: GASTROINTESTINAL STROMAL TUMOUR
     Dosage: 200 MG, QD
     Route: 048
     Dates: start: 201608
  2. GLIVEC [Suspect]
     Active Substance: IMATINIB MESYLATE
     Dosage: 400 MG, UNK
     Route: 048

REACTIONS (9)
  - General physical health deterioration [Unknown]
  - Gastrointestinal fistula [Unknown]
  - Asthenia [Unknown]
  - Vomiting [Unknown]
  - Dysphagia [Unknown]
  - Aphasia [Unknown]
  - Oral discomfort [Unknown]
  - Oral mucosal exfoliation [Unknown]
  - Procedural complication [Unknown]
